FAERS Safety Report 10186313 (Version 1)
Quarter: 2014Q2

REPORT INFORMATION
  Report Type: Spontaneous
  Country: US (occurrence: US)
  Receive Date: 20140521
  Receipt Date: 20140521
  Transmission Date: 20141212
  Serious: Yes (Other)
  Sender: FDA-Public Use
  Company Number: US-ASTRAZENECA-2014SE33405

PATIENT
  Age: 40 Year
  Sex: Female

DRUGS (1)
  1. NEXIUM [Suspect]
     Route: 048
     Dates: start: 2004

REACTIONS (3)
  - Ankle fracture [Unknown]
  - Lower limb fracture [Unknown]
  - Intentional product misuse [Unknown]
